FAERS Safety Report 7627159-7 (Version None)
Quarter: 2011Q3

REPORT INFORMATION
  Report Type: 
  Country: None (occurrence: None)
  Receive Date: 20110721
  Receipt Date: 20110714
  Transmission Date: 20111222
  Serious: Yes (Hospitalization, Other)
  Sender: FDA-Public Use
  Company Number: US-BAYER-201036922NA

PATIENT
  Age: 25 Year
  Sex: Female

DRUGS (6)
  1. IBUPROFEN [Concomitant]
     Dosage: 800 MG, UNK
  2. YASMIN [Suspect]
     Dosage: UNK
     Route: 048
     Dates: start: 20080930, end: 20100321
  3. CYCLOBENZAPRINE [Concomitant]
     Dosage: 10 MG, UNK
  4. DEPO-PROVERA [Concomitant]
  5. SUMATRIPTAN SUCCINATE [Concomitant]
     Dosage: 50 MG, UNK
  6. HYDROCHLOROTHIAZIDE [Concomitant]
     Indication: HYPERTENSION

REACTIONS (2)
  - PULMONARY EMBOLISM [None]
  - PAIN [None]
